FAERS Safety Report 7737020-5 (Version None)
Quarter: 2011Q3

REPORT INFORMATION
  Report Type: 
  Country: None (occurrence: None)
  Receive Date: 20110908
  Receipt Date: 20110825
  Transmission Date: 20111222
  Serious: Yes (Other)
  Sender: FDA-Public Use
  Company Number: US-ELI_LILLY_AND_COMPANY-US201009007020

PATIENT
  Sex: Female

DRUGS (5)
  1. FORTEO [Suspect]
     Dosage: 20 UG, DAILY (1/D)
  2. FORTEO [Suspect]
     Dosage: 20 UG, QD
  3. FORTEO [Suspect]
     Indication: OSTEOPOROSIS
     Dosage: 20 UG, DAILY (1/D)
     Dates: start: 20100915
  4. FORTEO [Suspect]
     Dosage: 20 UG, DAILY (1/D)
  5. FORTEO [Suspect]
     Dosage: 20 UG, QD

REACTIONS (8)
  - WEIGHT DECREASED [None]
  - INJECTION SITE HAEMATOMA [None]
  - MUSCLE ATROPHY [None]
  - ARTHRALGIA [None]
  - SOMNOLENCE [None]
  - INJECTION SITE HAEMORRHAGE [None]
  - MUSCULOSKELETAL PAIN [None]
  - MYALGIA [None]
